FAERS Safety Report 6873145-4 (Version None)
Quarter: 2010Q3

REPORT INFORMATION
  Report Type: 
  Country: None (occurrence: None)
  Receive Date: 20100721
  Receipt Date: 20100706
  Transmission Date: 20110219
  Serious: Yes (Hospitalization)
  Sender: FDA-Public Use
  Company Number: 2010002571

PATIENT
  Age: 55 Year
  Sex: Female
  Weight: 66 kg

DRUGS (32)
  1. ERLOTINIB HYDROCHLORIDE [Suspect]
     Indication: NON-SMALL CELL LUNG CANCER
     Dosage: 9150 MG, QD), ORAL
     Route: 048
  2. ACETAMINOPHEN [Concomitant]
  3. CIPROFLOXACIN [Concomitant]
  4. DEXTROSE 5% [Concomitant]
  5. ENOXAPARIN SODIUM [Concomitant]
  6. INSULIN HUMAN (INSULIN HUMAN) [Concomitant]
  7. IPRATROPIUM BROMIDE [Concomitant]
  8. LEVALBUTEROL HYDROCHLORIDE [Concomitant]
  9. MAGNESIUM SULFATE [Concomitant]
  10. METHYLPREDNISOLONE [Concomitant]
  11. MORPHINE [Concomitant]
  12. ONDANSETRON HYDROCHLORIDE [Concomitant]
  13. PIPERACILLIN [Concomitant]
  14. POTASSIUM CHLORIDE [Concomitant]
  15. SODIUM CHLORIDE 0.9% [Concomitant]
  16. SODIUM PHOSPHATE [Concomitant]
  17. VANCOMYCIN HYDROCHLORIDE [Concomitant]
  18. ACYCLOVIR [Concomitant]
  19. ALPRAZOLAM [Concomitant]
  20. COLESEVELAM HYDROCHLORIDE (COLESEVELAM HYDROCHLORIDE) [Concomitant]
  21. GUAIFENESIN AND DEXTROMETHORPHAN HBR [Concomitant]
  22. FLUOXETINE [Concomitant]
  23. FLUTICASONE / SALMETEROL [Concomitant]
  24. LEVOFLOXACIN [Concomitant]
  25. MEROPENEM [Concomitant]
  26. MONTELUKAST SODIUM [Concomitant]
  27. PANTOPRAZOLE SODIUM [Concomitant]
  28. PREDNISONE [Concomitant]
  29. PREGABALIN [Concomitant]
  30. PROMETHAZINE [Concomitant]
  31. SODIUM CHLORIDE 0.9% [Concomitant]
  32. ZOLPIDEM TARTRATE [Concomitant]

REACTIONS (14)
  - BLOOD BILIRUBIN INCREASED [None]
  - BLOOD CREATININE DECREASED [None]
  - BLOOD GLUCOSE INCREASED [None]
  - CHRONIC OBSTRUCTIVE PULMONARY DISEASE [None]
  - CONDITION AGGRAVATED [None]
  - GLUCOSE URINE PRESENT [None]
  - HAEMATOCRIT DECREASED [None]
  - HAEMOGLOBIN DECREASED [None]
  - LUNG SQUAMOUS CELL CARCINOMA STAGE UNSPECIFIED [None]
  - PNEUMONIA [None]
  - PROTEIN URINE PRESENT [None]
  - RED CELL DISTRIBUTION WIDTH DECREASED [None]
  - STAPHYLOCOCCUS TEST POSITIVE [None]
  - URINE ABNORMALITY [None]
